FAERS Safety Report 5219992-6 (Version None)
Quarter: 2007Q1

REPORT INFORMATION
  Report Type: 
  Country: None (occurrence: None)
  Receive Date: 20070124
  Receipt Date: 20070124
  Transmission Date: 20070707
  Serious: Yes (Other)
  Sender: FDA-Public Use
  Company Number: None

PATIENT
  Age: 55 Year
  Sex: Male
  Weight: 125.2 kg

DRUGS (19)
  1. LAMICTAL [Suspect]
  2. MULTI-VITAMIN [Concomitant]
  3. MOMETASONE FUROATE [Concomitant]
  4. LEVALBUTEROL TART [Concomitant]
  5. METHOCARBAMOL [Concomitant]
  6. TRAMADOL HCL [Concomitant]
  7. FORMOTEROL FUMARATE [Concomitant]
  8. ASPIRIN [Concomitant]
  9. IPRATROPIUM BROMIDE [Concomitant]
  10. SUNSCREEN-30 PABA-FREE COMBINATION [Concomitant]
  11. DIPHENHYDRAMINE HCL [Concomitant]
  12. PREDNISONE [Concomitant]
  13. CARBAMAZEPINE [Concomitant]
  14. CLONAZEPAM [Concomitant]
  15. ALGIN AC/ALOH 80/MG TRI 20/NA BICARB [Concomitant]
  16. ALBUTEROL [Concomitant]
  17. LORATADINE [Concomitant]
  18. HEMORRHOIDAL RTL SUPP [Concomitant]
  19. IPRATROPIUM BROMIDE [Concomitant]

REACTIONS (1)
  - RASH [None]
